FAERS Safety Report 4408816-2 (Version None)
Quarter: 2004Q3

REPORT INFORMATION
  Report Type: 
  Country: None (occurrence: None)
  Receive Date: 20040722
  Receipt Date: 20040706
  Transmission Date: 20050211
  Serious: Yes (Hospitalization)
  Sender: FDA-Public Use
  Company Number: 200870

PATIENT
  Age: 63 Year
  Sex: Female

DRUGS (1)
  1. AVONEX [Suspect]
     Indication: MULTIPLE SCLEROSIS
     Dosage: 30 MCG QW IM
     Route: 030

REACTIONS (7)
  - ABASIA [None]
  - ARTHRALGIA [None]
  - BLOOD POTASSIUM DECREASED [None]
  - LOSS OF CONSCIOUSNESS [None]
  - MULTIPLE SCLEROSIS [None]
  - PAIN IN EXTREMITY [None]
  - SINUSITIS [None]
